FAERS Safety Report 24159096 (Version 1)
Quarter: 2024Q3

REPORT INFORMATION
  Report Type: Spontaneous
  Country: GR (occurrence: GR)
  Receive Date: 20240731
  Receipt Date: 20240731
  Transmission Date: 20241017
  Serious: Yes (Life-Threatening, Other)
  Sender: MERCK
  Company Number: None

PATIENT
  Age: 51 Year
  Sex: Female
  Weight: 75 kg

DRUGS (10)
  1. BRIDION [Suspect]
     Active Substance: SUGAMMADEX
     Indication: Neuromuscular blockade reversal
     Dosage: 4 MILLIGRAM/KILOGRAM
     Route: 042
     Dates: start: 20240704, end: 20240704
  2. PROPOFOL [Suspect]
     Active Substance: PROPOFOL
     Indication: Anaesthesia
     Dosage: 2 MILLIGRAM/KILOGRAM
     Route: 042
     Dates: start: 20240704, end: 20240704
  3. PROPOFOL [Suspect]
     Active Substance: PROPOFOL
     Dosage: BOLUS; 2.23 MILLIGRAM/KILOGRAM
     Route: 042
     Dates: start: 20240704, end: 20240704
  4. REMIFENTANIL HYDROCHLORIDE [Concomitant]
     Active Substance: REMIFENTANIL HYDROCHLORIDE
     Indication: Analgesic therapy
     Dosage: 2 MILLIGRAM/KILOGRAM
     Route: 042
     Dates: start: 20240704, end: 20240704
  5. XANAX [Concomitant]
     Active Substance: ALPRAZOLAM
     Dosage: 0.25MG; X2
     Route: 048
     Dates: start: 20240703, end: 20240704
  6. ACETAMINOPHEN [Concomitant]
     Active Substance: ACETAMINOPHEN
     Indication: Analgesic therapy
     Dosage: 1 GRAM
     Route: 042
     Dates: start: 20240704, end: 20240704
  7. FENTANYL [Concomitant]
     Active Substance: FENTANYL\FENTANYL CITRATE
     Indication: Anaesthesia
     Dosage: 0.1 MILLIGRAM, ONCE
     Route: 042
     Dates: start: 20240704, end: 20240704
  8. DEMOXATE [Concomitant]
     Dosage: 2.5 MILLIGRAM
     Route: 042
     Dates: start: 20240704, end: 20240704
  9. VIATRINIL [Concomitant]
     Indication: Antiemetic supportive care
     Dosage: 3 MILLIGRAM
     Route: 042
     Dates: start: 20240704, end: 20240704
  10. CONSOLID [LIDOCAINE HYDROCHLORIDE] [Concomitant]
     Indication: Induction of anaesthesia
     Dosage: 40 MG, ONCE
     Route: 042
     Dates: start: 20240704, end: 20240704

REACTIONS (5)
  - Bradycardia [Recovered/Resolved]
  - Erythema [Recovered/Resolved]
  - Blood pressure decreased [Recovered/Resolved]
  - Oxygen saturation decreased [Recovered/Resolved]
  - Anaphylactic shock [Recovered/Resolved]

NARRATIVE: CASE EVENT DATE: 20240704
